FAERS Safety Report 21621421 (Version 1)
Quarter: 2022Q4

REPORT INFORMATION
  Report Type: Spontaneous
  Country: US (occurrence: None)
  Receive Date: 20221118
  Receipt Date: 20221118
  Transmission Date: 20230113
  Serious: Yes (Life-Threatening)
  Sender: FDA-Public Use
  Company Number: None

PATIENT
  Age: 47 Year
  Sex: Male
  Weight: 76.5 kg

DRUGS (2)
  1. XANAX [Suspect]
     Active Substance: ALPRAZOLAM
     Indication: Sleep disorder
     Dosage: OTHER FREQUENCY : AS NEEDED;?
     Route: 048
     Dates: start: 19971010
  2. KLONOPIN [Suspect]
     Active Substance: CLONAZEPAM

REACTIONS (3)
  - Memory impairment [None]
  - Cognitive disorder [None]
  - Impaired quality of life [None]

NARRATIVE: CASE EVENT DATE: 20221118
